FAERS Safety Report 15682491 (Version 1)
Quarter: 2018Q4

REPORT INFORMATION
  Report Type: Spontaneous
  Country: US (occurrence: US)
  Receive Date: 20181203
  Receipt Date: 20181203
  Transmission Date: 20190205
  Serious: Yes (Hospitalization, Other)
  Sender: FDA-Public Use
  Company Number: US-BAUSCH-BL-2018-033233

PATIENT
  Age: 62 Year
  Sex: Male

DRUGS (15)
  1. ATIVAN [Suspect]
     Active Substance: LORAZEPAM
     Indication: SCHIZOPHRENIA
     Route: 065
  2. RISPERIDONE. [Suspect]
     Active Substance: RISPERIDONE
     Dosage: INCREASED TO 1.5 MG BID
     Route: 065
  3. DOCUSATE SODIUM. [Suspect]
     Active Substance: DOCUSATE SODIUM
     Indication: SCHIZOPHRENIA
     Route: 065
  4. RISPERIDONE. [Suspect]
     Active Substance: RISPERIDONE
     Dosage: HOSPITAL DAY 2
     Route: 065
  5. ATIVAN [Suspect]
     Active Substance: LORAZEPAM
     Dosage: 0.5 MG QHS ON HOSPITAL DAYS 3 AND 4, THEN STOPPED
     Route: 065
  6. HALOPERIDOL. [Suspect]
     Active Substance: HALOPERIDOL
     Indication: SCHIZOPHRENIA
     Dosage: QHS (RESTARTED BEFORE TRANSFER AFTER PSYCHIATRIC CONSULTATION), DISCONTINUED ON HOSPITAL DAY 2
     Route: 065
  7. TERBUTALINE [Suspect]
     Active Substance: TERBUTALINE
     Indication: SCHIZOPHRENIA
     Dosage: AEROSOLS
     Route: 065
  8. ATIVAN [Suspect]
     Active Substance: LORAZEPAM
     Route: 065
  9. ATIVAN [Suspect]
     Active Substance: LORAZEPAM
     Route: 065
  10. AMITRIPTYLINE [Suspect]
     Active Substance: AMITRIPTYLINE
     Indication: SCHIZOPHRENIA
     Dosage: QHS
     Route: 065
  11. IPRATROPIUM [Suspect]
     Active Substance: IPRATROPIUM
     Indication: SCHIZOPHRENIA
     Route: 065
  12. AMITRIPTYLINE [Suspect]
     Active Substance: AMITRIPTYLINE
     Dosage: QHS FOR I DAY
     Route: 065
  13. CEFUROXIME. [Suspect]
     Active Substance: CEFUROXIME
     Indication: SCHIZOPHRENIA
     Route: 065
  14. CLINDAMYCIN. [Suspect]
     Active Substance: CLINDAMYCIN
     Indication: SCHIZOPHRENIA
     Route: 065
  15. RISPERIDONE. [Suspect]
     Active Substance: RISPERIDONE
     Indication: SCHIZOPHRENIA
     Route: 065

REACTIONS (1)
  - Withdrawal catatonia [Recovered/Resolved]
